FAERS Safety Report 13625745 (Version 1)
Quarter: 2017Q2

REPORT INFORMATION
  Report Type: Spontaneous
  Country: US (occurrence: US)
  Receive Date: 20170608
  Receipt Date: 20170608
  Transmission Date: 20170830
  Serious: Yes (Other)
  Sender: FDA-Public Use
  Company Number: US-AMGEN-USASP2017085514

PATIENT
  Age: 70 Year
  Sex: Male

DRUGS (1)
  1. ENBREL [Suspect]
     Active Substance: ETANERCEPT
     Indication: CROHN^S DISEASE
     Dosage: UNK
     Route: 065
     Dates: end: 20160909

REACTIONS (4)
  - Shoulder arthroplasty [Unknown]
  - Off label use [Unknown]
  - Therapeutic response unexpected [Unknown]
  - Small fibre neuropathy [Unknown]

NARRATIVE: CASE EVENT DATE: 2016
